FAERS Safety Report 19452100 (Version 5)
Quarter: 2021Q3

REPORT INFORMATION
  Report Type: Report from Study
  Country: CN (occurrence: CN)
  Receive Date: 20210623
  Receipt Date: 20210914
  Transmission Date: 20211014
  Serious: Yes (Hospitalization)
  Sender: FDA-Public Use
  Company Number: CN-KARYOPHARM-2021KPT000825

PATIENT
  Age: 52 Year
  Sex: Female

DRUGS (11)
  1. SELINEXOR [Suspect]
     Active Substance: SELINEXOR
     Dosage: 20 MG 2 IN 21 D
     Route: 048
     Dates: start: 20210304, end: 20210311
  2. SELINEXOR [Suspect]
     Active Substance: SELINEXOR
     Dosage: 60 MG
     Route: 048
     Dates: start: 20210402, end: 20210506
  3. SELINEXOR [Suspect]
     Active Substance: SELINEXOR
     Dosage: 40 MG 2 IN 21 D
     Route: 048
     Dates: start: 20210121, end: 20210219
  4. OXALIPLATIN. [Suspect]
     Active Substance: OXALIPLATIN
     Indication: ANGIOCENTRIC LYMPHOMA
     Dosage: 201.5 MG 1 IN 21 D
     Route: 042
     Dates: start: 20201228, end: 20201228
  5. GEMCITABINE. [Suspect]
     Active Substance: GEMCITABINE
     Dosage: 1120 MG 2 IN 21 D
     Route: 042
     Dates: start: 20210120, end: 20210209
  6. GEMCITABINE. [Suspect]
     Active Substance: GEMCITABINE
     Indication: ANGIOCENTRIC LYMPHOMA
     Dosage: 1550 MG 2 IN 21 D
     Route: 042
     Dates: start: 20201228, end: 20210104
  7. GEMCITABINE. [Suspect]
     Active Substance: GEMCITABINE
     Dosage: 1120 MG 2 IN 21 D
     Route: 042
     Dates: start: 20210304, end: 20210304
  8. GEMCITABINE. [Suspect]
     Active Substance: GEMCITABINE
     Dosage: 84 MG 2 IN 21 D
     Route: 042
     Dates: start: 20210311, end: 20210311
  9. SELINEXOR [Suspect]
     Active Substance: SELINEXOR
     Indication: ANGIOCENTRIC LYMPHOMA
     Dosage: 60 MG 2 IN 21 D
     Route: 048
     Dates: start: 20201229, end: 20210105
  10. SELINEXOR [Suspect]
     Active Substance: SELINEXOR
     Dosage: 40 MG
     Route: 048
     Dates: start: 20210514, end: 20210528
  11. OXALIPLATIN. [Suspect]
     Active Substance: OXALIPLATIN
     Dosage: 149 MG 1 IN 21 D
     Route: 042
     Dates: start: 20210120, end: 20210304

REACTIONS (1)
  - Anaemia [Recovered/Resolved]

NARRATIVE: CASE EVENT DATE: 20210610
